FAERS Safety Report 7510440-X (Version None)
Quarter: 2011Q2

REPORT INFORMATION
  Report Type: 
  Country: None (occurrence: None)
  Receive Date: 20110527
  Receipt Date: 20110516
  Transmission Date: 20111010
  Serious: Yes (Hospitalization, Other)
  Sender: FDA-Public Use
  Company Number: FR-ELI_LILLY_AND_COMPANY-FR201105005579

PATIENT
  Sex: Male

DRUGS (9)
  1. CLONAZEPAM [Concomitant]
     Dosage: UNK, UNKNOWN
     Route: 065
  2. NEULASTA [Concomitant]
     Indication: CHEMOTHERAPY
     Dosage: 6 MG, UNK
     Route: 042
     Dates: start: 20100910
  3. PREDNISOLONE [Concomitant]
     Dosage: UNK, UNKNOWN
     Route: 065
  4. BISOPROLOL FUMARATE [Concomitant]
     Dosage: UNK, UNKNOWN
     Route: 065
  5. RAMIPRIL [Concomitant]
     Dosage: UNK, UNKNOWN
     Route: 065
  6. NEXIUM [Concomitant]
     Dosage: UNK, UNKNOWN
     Route: 065
  7. ACIDE FOLIQUE [Concomitant]
     Dosage: UNK, UNKNOWN
     Route: 065
  8. ALIMTA [Suspect]
     Indication: LUNG NEOPLASM MALIGNANT
     Dosage: 400 MG/M2, UNKNOWN
     Route: 042
     Dates: start: 20100909
  9. TRILEPTAL [Concomitant]
     Dosage: UNK, UNKNOWN
     Route: 065

REACTIONS (3)
  - SEGMENTED HYALINISING VASCULITIS [None]
  - THROMBOCYTOPENIA [None]
  - TRANSAMINASES INCREASED [None]
